FAERS Safety Report 9129562 (Version 1)
Quarter: 2013Q1

REPORT INFORMATION
  Report Type: Spontaneous
  Country: US (occurrence: US)
  Receive Date: 20130228
  Receipt Date: 20130228
  Transmission Date: 20140127
  Serious: No
  Sender: FDA-Public Use
  Company Number: US-ABBOTT-13P-163-1032978-00

PATIENT
  Age: 60 None
  Sex: Male
  Weight: 96.25 kg

DRUGS (4)
  1. ANDROGEL [Suspect]
     Indication: BLOOD TESTOSTERONE DECREASED
     Dosage: 4 PUMP ACTUATIONS PER DAY
     Dates: start: 20121203
  2. ANDROGEL [Suspect]
     Indication: BLOOD TESTOSTERONE DECREASED
     Dates: start: 201102
  3. PRILOSEC [Concomitant]
     Indication: GASTROOESOPHAGEAL REFLUX DISEASE
  4. TAMSULOSIN HCL [Concomitant]
     Indication: PROSTATIC DISORDER

REACTIONS (3)
  - Medication error [Recovered/Resolved]
  - Erectile dysfunction [Not Recovered/Not Resolved]
  - Drug ineffective [Recovered/Resolved]
